FAERS Safety Report 8836549 (Version 1)
Quarter: 2012Q4

REPORT INFORMATION
  Report Type: Spontaneous
  Country: US (occurrence: None)
  Receive Date: 20121009
  Receipt Date: 20121009
  Transmission Date: 20130627
  Serious: Yes (Death, Other)
  Sender: FDA-Public Use
  Company Number: TPA2012A07528

PATIENT
  Sex: Female

DRUGS (1)
  1. ACTOS (PIOGLITAZONE HYDROCHLORIDE) [Suspect]
     Dates: start: 2008, end: 201009

REACTIONS (2)
  - Myocardial infarction [None]
  - Cardiac failure [None]
